FAERS Safety Report 23411516 (Version 1)
Quarter: 2024Q1

REPORT INFORMATION
  Report Type: Spontaneous
  Country: US (occurrence: US)
  Receive Date: 20240117
  Receipt Date: 20240117
  Transmission Date: 20240410
  Serious: No
  Sender: FDA-Public Use
  Company Number: US-SK LIFE SCIENCE, INC-SKPVG-2023-000651

PATIENT

DRUGS (7)
  1. XCOPRI [Suspect]
     Active Substance: CENOBAMATE
     Indication: Epilepsy
     Dosage: 12.5 MILLIGRAM
     Route: 048
  2. XCOPRI [Suspect]
     Active Substance: CENOBAMATE
     Dosage: UNK
     Route: 048
  3. XCOPRI [Suspect]
     Active Substance: CENOBAMATE
     Dosage: 25 MILLIGRAM, QD
     Route: 048
  4. XCOPRI [Suspect]
     Active Substance: CENOBAMATE
     Dosage: 50MG/100MG TITRATION PACK
     Route: 048
  5. LAMOTRIGINE [Concomitant]
     Active Substance: LAMOTRIGINE
     Indication: Product used for unknown indication
     Dosage: 500 MILLIGRAM
     Route: 065
  6. ZONISAMIDE [Concomitant]
     Active Substance: ZONISAMIDE
     Indication: Product used for unknown indication
     Dosage: 200 MILLIGRAM
     Route: 065
  7. ABILIFY [Concomitant]
     Active Substance: ARIPIPRAZOLE
     Indication: Product used for unknown indication
     Dosage: UNK
     Route: 065

REACTIONS (7)
  - Feeling abnormal [Unknown]
  - Contusion [Not Recovered/Not Resolved]
  - Borderline personality disorder [Unknown]
  - Anger [Unknown]
  - Personality change [Unknown]
  - Aggression [Not Recovered/Not Resolved]
  - Headache [Not Recovered/Not Resolved]
